FAERS Safety Report 5670950-7 (Version None)
Quarter: 2008Q1

REPORT INFORMATION
  Report Type: 
  Country: None (occurrence: None)
  Receive Date: 20080318
  Receipt Date: 20080310
  Transmission Date: 20080703
  Serious: Yes (Hospitalization)
  Sender: FDA-Public Use
  Company Number: JP-GILEAD-E2B_00000079

PATIENT
  Age: 61 Year
  Sex: Female

DRUGS (4)
  1. HEPSERA [Suspect]
     Indication: HEPATIC CIRRHOSIS
     Dosage: 10MG PER DAY
     Route: 048
     Dates: start: 20070801
  2. ZEFIX [Concomitant]
     Indication: HEPATIC CIRRHOSIS
     Route: 048
  3. BERIZYM [Concomitant]
     Indication: GASTRITIS
     Route: 048
     Dates: start: 20060816
  4. SELBEX [Concomitant]
     Indication: GASTRITIS
     Dosage: 1.2G PER DAY
     Route: 048
     Dates: start: 20060816

REACTIONS (1)
  - PLATELET COUNT DECREASED [None]
